FAERS Safety Report 6950813-7 (Version None)
Quarter: 2010Q3

REPORT INFORMATION
  Report Type: 
  Country: None (occurrence: None)
  Receive Date: 20100828
  Receipt Date: 20100317
  Transmission Date: 20110219
  Serious: No
  Sender: FDA-Public Use
  Company Number: US-ABBOTT-10P-163-0629286-00

PATIENT
  Sex: Female
  Weight: 106.69 kg

DRUGS (6)
  1. NIASPAN [Suspect]
     Indication: BLOOD CHOLESTEROL INCREASED
     Dates: start: 20100209
  2. ALTOPREV [Concomitant]
     Indication: BLOOD CHOLESTEROL INCREASED
  3. LEXAPRO [Concomitant]
     Indication: ANXIETY
  4. ZYRTEC [Concomitant]
     Indication: HYPERSENSITIVITY
  5. MOBIC [Concomitant]
     Indication: SWELLING
  6. MOBIC [Concomitant]
     Indication: INFLAMMATION

REACTIONS (2)
  - FLUSHING [None]
  - PRURITUS [None]
